FAERS Safety Report 10395220 (Version 5)
Quarter: 2014Q4

REPORT INFORMATION
  Report Type: Spontaneous
  Country: US (occurrence: US)
  Receive Date: 20140820
  Receipt Date: 20141007
  Transmission Date: 20150528
  Serious: Yes (Hospitalization, Other)
  Sender: FDA-Public Use
  Company Number: US-UCBSA-102459

PATIENT
  Age: 59 Year
  Sex: Female
  Weight: 72.6 kg

DRUGS (12)
  1. XYREM [Suspect]
     Active Substance: SODIUM OXYBATE
     Dosage: 1.7G FIRST DOSE AND 1.8G SECOND DOSE, 2X/DAY (BID)
     Route: 048
     Dates: start: 201407, end: 2014
  2. CATAFLAM [Concomitant]
     Active Substance: DICLOFENAC POTASSIUM
  3. KEPPRA [Suspect]
     Active Substance: LEVETIRACETAM
     Indication: SEIZURE
     Dosage: 250 MG, ONCE DAILY (QD), EVERY MORNING
  4. XYREM [Suspect]
     Active Substance: SODIUM OXYBATE
     Indication: CATAPLEXY
     Dosage: 2.25G FIRST DOSE AND 2G SECOND DOSE 2X/DAY (BID)
     Route: 048
     Dates: start: 201310, end: 2013
  5. XYREM [Suspect]
     Active Substance: SODIUM OXYBATE
     Dosage: 2.25 G, 2X/DAY (BID)
     Route: 048
     Dates: start: 2014
  6. LAMICTAL [Suspect]
     Active Substance: LAMOTRIGINE
     Dosage: UNK
  7. ONFI [Suspect]
     Active Substance: CLOBAZAM
     Dosage: UNK
  8. LEVOTHYROXINE [Concomitant]
     Active Substance: LEVOTHYROXINE
     Indication: HYPOTHYROIDISM
  9. ZOLOFT [Concomitant]
     Active Substance: SERTRALINE HYDROCHLORIDE
     Indication: DEPRESSION
  10. XYREM [Suspect]
     Active Substance: SODIUM OXYBATE
     Dosage: 1.7 G, ONCE NIGHTLY EVERY OTHER NIGHT
     Route: 048
     Dates: start: 2013, end: 2013
  11. XYREM [Suspect]
     Active Substance: SODIUM OXYBATE
     Dosage: 2X/DAY (BID), 1.8G FIRST DOSE AND 2G SECOND DOSE, 500 MG/ML
     Route: 048
     Dates: start: 2014, end: 2014
  12. EFFEXOR [Concomitant]
     Active Substance: VENLAFAXINE HYDROCHLORIDE
     Indication: CATAPLEXY
     Dosage: UNK

REACTIONS (13)
  - Rash [Recovered/Resolved]
  - Suicidal ideation [Unknown]
  - Dysphemia [Recovered/Resolved]
  - Inappropriate schedule of drug administration [Unknown]
  - Therapeutic response unexpected [Unknown]
  - Energy increased [Unknown]
  - Hypoaesthesia [Recovering/Resolving]
  - Drug ineffective [Unknown]
  - Depression [Not Recovered/Not Resolved]
  - Cataplexy [Unknown]
  - Intentional product misuse [Unknown]
  - Weight increased [Not Recovered/Not Resolved]
  - Tremor [Recovered/Resolved]

NARRATIVE: CASE EVENT DATE: 2013
